FAERS Safety Report 26082486 (Version 1)
Quarter: 2025Q4

REPORT INFORMATION
  Report Type: Spontaneous
  Country: US (occurrence: None)
  Receive Date: 20251121
  Receipt Date: 20251121
  Transmission Date: 20260118
  Serious: Yes (Disabling)
  Sender: FDA-CTU
  Company Number: None

PATIENT
  Age: 17 Year
  Sex: Female

DRUGS (1)
  1. AMJEVITA [Suspect]
     Active Substance: ADALIMUMAB-ATTO
     Indication: Proctitis ulcerative
     Dosage: OTHER QUANTITY : 80MG/0.8MLX2?OTHER FREQUENCY : INJECT ONCE EVERY 2 WEEKS;?

REACTIONS (7)
  - Haematochezia [None]
  - Diarrhoea [None]
  - Pain [None]
  - Fatigue [None]
  - Headache [None]
  - Nausea [None]
  - Vomiting [None]
